FAERS Safety Report 16720601 (Version 1)
Quarter: 2019Q4

REPORT INFORMATION
  Report Type: Spontaneous
  Country: US (occurrence: US)
  Receive Date: 20190819
  Receipt Date: 20190819
  Transmission Date: 20200122
  Serious: No
  Sender: FDA-Public Use
  Company Number: None

PATIENT
  Age: 37 Year
  Sex: Female
  Weight: 56.25 kg

DRUGS (3)
  1. OIL-FREE ACNE WASH PINK GRAPEFRUIT SALICYLIC ACID ACNE MEDICATION (UP AND UP) [Suspect]
     Active Substance: SALICYLIC ACID
     Indication: ACNE
     Route: 061
     Dates: start: 20190725, end: 20190818
  2. MULTI VITAMIN [Concomitant]
     Active Substance: VITAMINS
  3. FISH OIL [Concomitant]
     Active Substance: FISH OIL

REACTIONS (1)
  - Application site swelling [None]

NARRATIVE: CASE EVENT DATE: 20190818
